FAERS Safety Report 6261839-3 (Version None)
Quarter: 2009Q3

REPORT INFORMATION
  Report Type: 
  Country: None (occurrence: None)
  Receive Date: 20090709
  Receipt Date: 20090630
  Transmission Date: 20100115
  Serious: Yes (Hospitalization)
  Sender: FDA-Public Use
  Company Number: A0718752A

PATIENT
  Age: 59 Year
  Sex: Male

DRUGS (5)
  1. AVANDIA [Suspect]
     Dosage: 8MG TWICE PER DAY
     Dates: start: 20001010, end: 20060727
  2. AVANDAMET [Suspect]
     Dates: start: 20001108, end: 20060727
  3. AVANDARYL [Suspect]
     Dates: start: 20001108, end: 20060727
  4. NPH [Concomitant]
     Dates: start: 19930101
  5. METOPROLOL [Concomitant]
     Dates: end: 20040101

REACTIONS (7)
  - FATIGUE [None]
  - MYOCARDIAL INFARCTION [None]
  - MYOCARDIAL ISCHAEMIA [None]
  - OEDEMA [None]
  - OEDEMA PERIPHERAL [None]
  - PAIN [None]
  - WEIGHT INCREASED [None]
